FAERS Safety Report 8345048-X (Version None)
Quarter: 2012Q2

REPORT INFORMATION
  Report Type: 
  Country: None (occurrence: None)
  Receive Date: 20120508
  Receipt Date: 20120427
  Transmission Date: 20120825
  Serious: Yes (Other)
  Sender: FDA-Public Use
  Company Number: US-ACTELION-A-US2012-61517

PATIENT

DRUGS (3)
  1. REVATIO [Concomitant]
  2. TRACLEER [Suspect]
     Indication: RAYNAUD'S PHENOMENON
     Dosage: UNK
     Route: 048
     Dates: start: 20110509, end: 20120207
  3. CALCIUM CHANNEL BLOCKERS [Concomitant]

REACTIONS (1)
  - PREGNANCY [None]
